FAERS Safety Report 9255098 (Version 4)
Quarter: 2014Q1

REPORT INFORMATION
  Report Type: Spontaneous
  Country: US (occurrence: US)
  Receive Date: 20130425
  Receipt Date: 20140108
  Transmission Date: 20141002
  Serious: Yes (Hospitalization, Disabling, Other)
  Sender: FDA-Public Use
  Company Number: US-ASTRAZENECA-2013SE27730

PATIENT
  Age: 54 Year
  Sex: Female
  Weight: 86.2 kg

DRUGS (28)
  1. NEXIUM [Suspect]
     Indication: GASTROOESOPHAGEAL REFLUX DISEASE
     Route: 048
  2. NEXIUM [Suspect]
     Indication: ABDOMINAL PAIN UPPER
     Route: 048
  3. NEXIUM [Suspect]
     Indication: GASTROOESOPHAGEAL REFLUX DISEASE
     Dosage: 40-80 MG ONE TIME SOME TIMES TWICE A DAY IF PAIN WAS REALLY BAD
     Route: 048
  4. NEXIUM [Suspect]
     Indication: ABDOMINAL PAIN UPPER
     Dosage: 40-80 MG ONE TIME SOME TIMES TWICE A DAY IF PAIN WAS REALLY BAD
     Route: 048
  5. NEXIUM [Suspect]
     Indication: GASTROOESOPHAGEAL REFLUX DISEASE
     Route: 048
     Dates: start: 20060407
  6. NEXIUM [Suspect]
     Indication: ABDOMINAL PAIN UPPER
     Route: 048
     Dates: start: 20060407
  7. NEXIUM [Suspect]
     Indication: GASTROOESOPHAGEAL REFLUX DISEASE
     Route: 048
     Dates: start: 20070302
  8. NEXIUM [Suspect]
     Indication: ABDOMINAL PAIN UPPER
     Route: 048
     Dates: start: 20070302
  9. OMEPRAZOLE [Suspect]
     Route: 048
  10. OMEPRAZOLE [Suspect]
     Route: 048
     Dates: start: 20100504
  11. OMEPRAZOLE [Suspect]
     Route: 048
     Dates: start: 20120802
  12. PREVACID [Suspect]
     Dosage: DAILY
     Route: 065
     Dates: start: 1998
  13. PREVACID [Suspect]
     Route: 065
     Dates: start: 20090902
  14. ACIPHEX [Concomitant]
     Dosage: ONE TIME
  15. PEPTO BISMOL [Concomitant]
     Indication: ABDOMINAL DISCOMFORT
     Dosage: 3 OR 4 TIMES ONE DOSE
  16. FLEXERIL [Concomitant]
  17. GABAPENTIN [Concomitant]
  18. LEXAPRO [Concomitant]
  19. LISINOPRIL [Concomitant]
     Indication: HYPERTENSION
  20. MELOXICAM [Concomitant]
  21. PAXIL [Concomitant]
  22. PREDNISONE [Concomitant]
  23. TRAMADOL [Concomitant]
     Dosage: 50 MG TABLET EVERY 6 HOURS AS NEEDED
  24. ZANTAC [Concomitant]
  25. PEPCID [Concomitant]
  26. FLUCONAZOLE [Concomitant]
     Dates: start: 20060512
  27. DICYCLOMINE [Concomitant]
     Dates: start: 20050713
  28. HYDROCHLOROTHIAZIDE [Concomitant]
     Dates: start: 20120420

REACTIONS (15)
  - Gastric disorder [Unknown]
  - Emotional distress [Unknown]
  - Benign bone neoplasm [Unknown]
  - Osteoporosis [Unknown]
  - Bone disorder [Unknown]
  - Foot fracture [Unknown]
  - Arthritis [Unknown]
  - Arthropathy [Unknown]
  - Spinal osteoarthritis [Unknown]
  - Lumbar spinal stenosis [Unknown]
  - Osteoarthritis [Unknown]
  - Hand fracture [Unknown]
  - Bone loss [Unknown]
  - Depression [Unknown]
  - Hypoaesthesia [Unknown]
